FAERS Safety Report 15290821 (Version 2)
Quarter: 2019Q1

REPORT INFORMATION
  Report Type: Spontaneous
  Country: GB (occurrence: GB)
  Receive Date: 20180817
  Receipt Date: 20190111
  Transmission Date: 20190417
  Serious: Yes (Other)
  Sender: FDA-Public Use
  Company Number: GB-TEVA-2018-GB-941800

PATIENT
  Age: 78 Year
  Sex: Female
  Weight: 65 kg

DRUGS (15)
  1. CASSIA [Concomitant]
     Dosage: ONE OR TWO TO BE TAKEN AT NIGHT
     Dates: start: 20170406
  2. TRIMETHOPRIM. [Concomitant]
     Active Substance: TRIMETHOPRIM
     Dosage: 2 DOSAGE FORMS DAILY;
     Dates: start: 20180622, end: 20180625
  3. GABAPENTIN. [Concomitant]
     Active Substance: GABAPENTIN
     Dosage: 9 DOSAGE FORMS DAILY;
     Dates: start: 20170406
  4. MEBEVERINE HYDROCHLORIDE [Concomitant]
     Active Substance: MEBEVERINE HYDROCHLORIDE
     Dosage: 3 DOSAGE FORMS DAILY;
     Dates: start: 20170801
  5. DOCUSATE SODIUM. [Concomitant]
     Active Substance: DOCUSATE SODIUM
     Dosage: 2 DOSAGE FORMS DAILY; NIGHT
     Dates: start: 20170406
  6. IBUPROFEN. [Concomitant]
     Active Substance: IBUPROFEN
     Dosage: 3 DOSAGE FORMS DAILY; APPLY
     Dates: start: 20170801
  7. PARACETAMOL [Concomitant]
     Active Substance: ACETAMINOPHEN
     Dosage: TAKE ONE OR TWO EVERY 4 TO 6 HOURS
     Dates: start: 20170406
  8. LANSOPRAZOLE. [Concomitant]
     Active Substance: LANSOPRAZOLE
     Dosage: 2 DOSAGE FORMS DAILY;
     Dates: start: 20170406, end: 20180514
  9. CALCIUM CARBONATE. [Concomitant]
     Active Substance: CALCIUM CARBONATE
     Dosage: 2 DOSAGE FORMS DAILY;
     Dates: start: 20170406
  10. TRAMADOL. [Concomitant]
     Active Substance: TRAMADOL
     Dosage: 8 DOSAGE FORMS DAILY;
     Dates: start: 20171110
  11. DOUBLEBASE [Concomitant]
     Active Substance: ISOPROPYL MYRISTATE\PARAFFIN
     Dosage: AS DIRECTED BY THE LYMPHOEDEMA KEYWORKER
     Dates: start: 20170726
  12. PROLIA [Concomitant]
     Active Substance: DENOSUMAB
     Dosage: USE AS DIRECTED
     Dates: start: 20180629
  13. NITROFURANTOIN. [Suspect]
     Active Substance: NITROFURANTOIN
     Route: 065
     Dates: start: 20180619
  14. BETAMETHASONE VALERATE. [Concomitant]
     Active Substance: BETAMETHASONE VALERATE
     Dosage: 2 DOSAGE FORMS DAILY;
     Dates: start: 20170406
  15. ESOMEPRAZOLE. [Concomitant]
     Active Substance: ESOMEPRAZOLE MAGNESIUM
     Dosage: 2 DOSAGE FORMS DAILY;
     Dates: start: 20180514

REACTIONS (2)
  - Muscle spasms [Recovering/Resolving]
  - Malaise [Unknown]

NARRATIVE: CASE EVENT DATE: 20180713
